FAERS Safety Report 8478751-1 (Version None)
Quarter: 2012Q2

REPORT INFORMATION
  Report Type: 
  Country: None (occurrence: None)
  Receive Date: 20120629
  Receipt Date: 20120626
  Transmission Date: 20120825
  Serious: Yes (Hospitalization, Other)
  Sender: FDA-Public Use
  Company Number: BR-ROCHE-1050251

PATIENT
  Sex: Female
  Weight: 57 kg

DRUGS (6)
  1. MABTHERA [Suspect]
     Route: 042
     Dates: start: 20110810
  2. MABTHERA [Suspect]
     Route: 042
     Dates: start: 20120202
  3. IMURAN [Concomitant]
  4. PANTOPRAZOLE [Concomitant]
  5. MABTHERA [Suspect]
     Indication: PRODUCT USED FOR UNKNOWN INDICATION
     Route: 042
     Dates: start: 20110727, end: 20120401
  6. SULFASALAZINE [Concomitant]

REACTIONS (10)
  - VOMITING [None]
  - ABDOMINAL DISTENSION [None]
  - MALAISE [None]
  - CONSTIPATION [None]
  - ABDOMINAL DISCOMFORT [None]
  - FLATULENCE [None]
  - GASTROINTESTINAL INFLAMMATION [None]
  - HAEMORRHAGE [None]
  - EATING DISORDER [None]
  - DECREASED APPETITE [None]
